FAERS Safety Report 5318275-3 (Version None)
Quarter: 2007Q2

REPORT INFORMATION
  Report Type: 
  Country: None (occurrence: None)
  Receive Date: 20070507
  Receipt Date: 20070425
  Transmission Date: 20071010
  Serious: Yes (Hospitalization, Other)
  Sender: FDA-Public Use
  Company Number: US-PFIZER INC-2007034360

PATIENT
  Sex: Female
  Weight: 58.5 kg

DRUGS (5)
  1. LIPITOR [Suspect]
     Indication: BLOOD CHOLESTEROL INCREASED
     Dates: start: 20050101, end: 20070424
  2. DIOVAN [Concomitant]
  3. PLAVIX [Concomitant]
  4. ACETYLSALICYLIC ACID SRT [Concomitant]
  5. METOPROLOL SUCCINATE [Concomitant]

REACTIONS (2)
  - HYPERTENSION [None]
  - PAIN IN EXTREMITY [None]
